FAERS Safety Report 4942458-5 (Version None)
Quarter: 2006Q1

REPORT INFORMATION
  Report Type: 
  Country: None (occurrence: None)
  Receive Date: 20060313
  Receipt Date: 20050223
  Transmission Date: 20060701
  Serious: No
  Sender: FDA-Public Use
  Company Number: US-GLAXOSMITHKLINE-A0546817A

PATIENT
  Age: 46 Year
  Sex: Female

DRUGS (2)
  1. NICORETTE (ORANGE) [Suspect]
  2. NICORETTE [Suspect]

REACTIONS (4)
  - DRUG ABUSER [None]
  - DRUG WITHDRAWAL SYNDROME [None]
  - FEELING OF RELAXATION [None]
  - NICOTINE DEPENDENCE [None]
